FAERS Safety Report 10142727 (Version 4)
Quarter: 2014Q2

REPORT INFORMATION
  Report Type: Spontaneous
  Country: US (occurrence: None)
  Receive Date: 20140425
  Receipt Date: 20140528
  Transmission Date: 20141212
  Serious: Yes (Hospitalization)
  Sender: FDA-Public Use
  Company Number: UTC-047163

PATIENT
  Age: 71 Year
  Sex: Female
  Weight: 93.4 kg

DRUGS (1)
  1. TYVASO [Suspect]
     Indication: PULMONARY ARTERIAL HYPERTENSION
     Route: 055
     Dates: start: 20140307

REACTIONS (9)
  - Chest pain [None]
  - Pain in extremity [None]
  - Back pain [None]
  - Limb discomfort [None]
  - Drug dose omission [None]
  - Headache [None]
  - Constipation [None]
  - Pain [None]
  - Diarrhoea [None]
